FAERS Safety Report 11147915 (Version 11)
Quarter: 2015Q4

REPORT INFORMATION
  Report Type: Spontaneous
  Country: DE (occurrence: DE)
  Receive Date: 20150529
  Receipt Date: 20151222
  Transmission Date: 20160304
  Serious: Yes (Hospitalization)
  Sender: FDA-Public Use
  Company Number: DE-AMGEN-DEUSP2015050992

PATIENT
  Sex: Male

DRUGS (33)
  1. PEGFILGRASTIM [Suspect]
     Active Substance: PEGFILGRASTIM
     Dosage: 6 MG, 1 IN 2 WK
     Route: 058
     Dates: start: 20150608, end: 20150608
  2. PEGFILGRASTIM [Suspect]
     Active Substance: PEGFILGRASTIM
     Dosage: 30 MIO IE
     Route: 058
     Dates: start: 20150515
  3. CYCLOPHOSPHAMIDE. [Suspect]
     Active Substance: CYCLOPHOSPHAMIDE
     Dosage: 105 MG, 1 IN 2 WK
     Route: 042
     Dates: start: 20150506, end: 20150506
  4. VINCRISTINE [Suspect]
     Active Substance: VINCRISTINE
     Dosage: 2 MG, 1 IN 2 WK
     Route: 042
     Dates: start: 20150605, end: 20150605
  5. PREDNISOLONE. [Suspect]
     Active Substance: PREDNISOLONE
     Dosage: 100 MG, 5 DAYS, EVERY 2 WEEKS FOR 5 DAYS
     Route: 048
     Dates: start: 20150605, end: 20150609
  6. DOXORUBICIN [Suspect]
     Active Substance: DOXORUBICIN
     Indication: B-CELL LYMPHOMA
     Dosage: 105 MG, 1 IN 2 WK
     Route: 042
     Dates: start: 20150605, end: 20150605
  7. PANTOPRAZOLE [Concomitant]
     Active Substance: PANTOPRAZOLE SODIUM
     Dosage: 20 MG, 1 IN 1 WK
     Route: 048
     Dates: start: 20150417
  8. PEGFILGRASTIM [Suspect]
     Active Substance: PEGFILGRASTIM
     Indication: B-CELL LYMPHOMA
     Dosage: 6 MG, 1 IN 2 WK
     Route: 058
     Dates: start: 20150511, end: 20150511
  9. RITUXIMAB [Suspect]
     Active Substance: RITUXIMAB
     Dosage: MOST RECENT CYCLE NO 8, LAST DOSE GIVEN PRIOR TO SAE 31/AUG/2015
     Route: 042
     Dates: start: 20150831
  10. PREDNISOLONE. [Suspect]
     Active Substance: PREDNISOLONE
     Indication: B-CELL LYMPHOMA
     Dosage: FOR 5 DAYS, 1-0-0, (1 IN 2 WK)
     Route: 048
     Dates: start: 20150506, end: 20150510
  11. HYDROCHLOROTHIAZIDE. [Concomitant]
     Active Substance: HYDROCHLOROTHIAZIDE
     Indication: DIURETIC THERAPY
     Dosage: 12.5 MG, 1 IN 1 D
     Route: 048
  12. METAMIZOLE SODIUM [Concomitant]
     Active Substance: METAMIZOLE SODIUM
     Indication: ANALGESIC THERAPY
     Dosage: 500 MG, 4 IN 1 D
     Route: 048
     Dates: start: 20150417, end: 20150616
  13. METAMIZOLE SODIUM [Concomitant]
     Active Substance: METAMIZOLE SODIUM
     Dosage: 500 MG, 8 IN 1 D
     Route: 048
  14. COLECALCIFEROL [Concomitant]
     Active Substance: CHOLECALCIFEROL
     Indication: PROPHYLAXIS
     Dosage: 20000 IU, 1 IN 1 WK
     Route: 048
     Dates: start: 201505
  15. RITUXIMAB [Suspect]
     Active Substance: RITUXIMAB
     Indication: B-CELL LYMPHOMA
     Dosage: 790 MG, 1 IN 2 WK
     Route: 042
     Dates: start: 20150506, end: 20150506
  16. ACICLOVIR [Concomitant]
     Active Substance: ACYCLOVIR
     Indication: PROPHYLAXIS
     Dosage: 400 MG, 4 IN 1 D
     Route: 048
  17. CIPROFLOXACIN. [Concomitant]
     Active Substance: CIPROFLOXACIN
     Indication: PROPHYLAXIS
     Dosage: 500 MG, 2 IN 1 D
     Route: 048
  18. SIMVASTATIN. [Concomitant]
     Active Substance: SIMVASTATIN
     Indication: PROPHYLAXIS
     Dosage: 20 MG, 1 IN 1 D
     Route: 048
     Dates: start: 20150417
  19. CYCLOPHOSPHAMIDE. [Suspect]
     Active Substance: CYCLOPHOSPHAMIDE
     Dosage: 1580 MG, 1 IN 2 WK
     Route: 042
     Dates: start: 20150605, end: 20150605
  20. SULFAMETHOXAZOLE-TRIMETHOPRIM (SMZ) [Concomitant]
     Active Substance: SULFAMETHOXAZOLE\TRIMETHOPRIM
     Dosage: 160 MG, 1-0-1
     Route: 048
  21. RITUXIMAB [Suspect]
     Active Substance: RITUXIMAB
     Dosage: 790 MG, 1 IN 2 WK
     Route: 042
     Dates: start: 20150605, end: 20150605
  22. SIMVASTATIN. [Concomitant]
     Active Substance: SIMVASTATIN
     Dosage: 12.5 MG, 1 IN 1 D
     Route: 048
  23. PANTOPRAZOLE [Concomitant]
     Active Substance: PANTOPRAZOLE SODIUM
     Indication: PROPHYLAXIS
     Dosage: 40 MG, 1 IN 1 D
     Route: 048
     Dates: start: 20150417
  24. ALLOPURINOL. [Concomitant]
     Active Substance: ALLOPURINOL
     Indication: PROPHYLAXIS
     Dosage: 100 MG, 1 IN 1 D
     Route: 048
  25. AMPHOTERICIN B. [Concomitant]
     Active Substance: AMPHOTERICIN B
     Indication: PROPHYLAXIS
     Dosage: 3 X 1 PIPETTE
     Route: 048
  26. RITUXIMAB [Suspect]
     Active Substance: RITUXIMAB
     Dosage: UNK UNK, 1 IN 1 D
     Route: 042
     Dates: start: 20151019, end: 20151019
  27. CYCLOPHOSPHAMIDE. [Suspect]
     Active Substance: CYCLOPHOSPHAMIDE
     Indication: B-CELL LYMPHOMA
     Dosage: 1580 MG, 1 IN 2 WK
     Route: 042
     Dates: start: 20150506, end: 20150506
  28. VINCRISTINE [Suspect]
     Active Substance: VINCRISTINE
     Indication: B-CELL LYMPHOMA
     Dosage: 2 MG, 1 IN 2 WK
     Route: 042
     Dates: start: 20150506, end: 20150506
  29. HYDROCHLOROTHIAZIDE. [Concomitant]
     Active Substance: HYDROCHLOROTHIAZIDE
     Indication: HYPERTENSION
     Dosage: 12.5 MG, 1 IN 1 D
     Route: 048
     Dates: start: 20151008
  30. FUROSEMIDE. [Concomitant]
     Active Substance: FUROSEMIDE
     Indication: DIURETIC THERAPY
     Dosage: 20 MG, 1 IN 1 D
     Route: 048
     Dates: start: 20150417
  31. FUROSEMIDE. [Concomitant]
     Active Substance: FUROSEMIDE
     Indication: HYPERTENSION
     Dosage: 10 MG, 1 IN 1 D
     Route: 048
     Dates: start: 20150417
  32. SULFAMETHOXAZOLE-TRIMETHOPRIM (SMZ) [Concomitant]
     Active Substance: SULFAMETHOXAZOLE\TRIMETHOPRIM
     Indication: PROPHYLAXIS
     Dosage: 360 MG, 1-0-1
     Route: 048
  33. METOCLOPRAMIDE. [Concomitant]
     Active Substance: METOCLOPRAMIDE
     Indication: PROPHYLAXIS
     Dosage: 10 MG, 3 IN 1 D
     Route: 048
     Dates: start: 201509

REACTIONS (4)
  - Atrial fibrillation [Unknown]
  - Febrile neutropenia [Recovered/Resolved]
  - Atrial flutter [Recovered/Resolved]
  - Supraventricular tachycardia [Recovered/Resolved]

NARRATIVE: CASE EVENT DATE: 20150515
